FAERS Safety Report 8046707-9 (Version None)
Quarter: 2012Q1

REPORT INFORMATION
  Report Type: 
  Country: None (occurrence: None)
  Receive Date: 20120116
  Receipt Date: 20120109
  Transmission Date: 20120608
  Serious: Yes (Hospitalization, Other)
  Sender: FDA-Public Use
  Company Number: DK-BIOGENIDEC-2011BI038128

PATIENT
  Age: 61 Year
  Sex: Female

DRUGS (6)
  1. BACLOFEN [Concomitant]
     Indication: MUSCLE SPASTICITY
     Dates: start: 20070514
  2. TYSABRI [Suspect]
     Indication: MULTIPLE SCLEROSIS
     Route: 042
     Dates: start: 20080908, end: 20110825
  3. OXYCONTIN [Concomitant]
     Indication: PAIN
     Dates: start: 20070101
  4. LAMOTRIGINE [Concomitant]
     Indication: PAIN
     Dates: start: 20070101
  5. TIZANIDINE HCL [Concomitant]
     Indication: MUSCLE SPASTICITY
     Dates: start: 20080101
  6. ETODOLAC [Concomitant]
     Indication: PAIN
     Dates: start: 20070101

REACTIONS (2)
  - PROGRESSIVE MULTIFOCAL LEUKOENCEPHALOPATHY [None]
  - IMMUNE RECONSTITUTION SYNDROME [None]
